FAERS Safety Report 8139172-4 (Version None)
Quarter: 2012Q1

REPORT INFORMATION
  Report Type: 
  Country: None (occurrence: None)
  Receive Date: 20120215
  Receipt Date: 20120209
  Transmission Date: 20120608
  Serious: Yes (Other)
  Sender: FDA-Public Use
  Company Number: US-NOVOPROD-337329

PATIENT
  Age: 61 Year
  Sex: Female
  Weight: 82.54 kg

DRUGS (27)
  1. ESTRACE [Concomitant]
     Indication: HORMONE REPLACEMENT THERAPY
  2. PRISTIQ [Concomitant]
     Indication: DEPRESSION
  3. NITROSTAT [Concomitant]
     Indication: ANGINA PECTORIS
     Dosage: UNK, PRN
  4. CRANBERRY                          /01512301/ [Concomitant]
     Indication: PRODUCT USED FOR UNKNOWN INDICATION
  5. MULTIVITAMIN                       /00097801/ [Concomitant]
     Indication: PRODUCT USED FOR UNKNOWN INDICATION
  6. VICTOZA [Suspect]
     Dosage: 1.8 MG, QD
     Route: 058
     Dates: start: 20110830, end: 20110830
  7. METFORMIN HCL [Concomitant]
     Indication: TYPE 2 DIABETES MELLITUS
     Dosage: UNK, BID
  8. LASIX [Concomitant]
     Indication: CARDIAC FAILURE CONGESTIVE
     Dosage: UNK, PRN
  9. ALLEGRA-D 12 HOUR [Concomitant]
     Indication: RHINITIS ALLERGIC
     Dosage: UNK, PRN
  10. CRESTOR [Concomitant]
     Indication: BLOOD CHOLESTEROL INCREASED
     Dosage: UNK, QD
  11. CLARINEX                           /01202601/ [Concomitant]
     Indication: RHINITIS ALLERGIC
  12. VICTOZA [Suspect]
     Indication: TYPE 2 DIABETES MELLITUS
     Dosage: 0.6 MG, QD
     Route: 058
     Dates: start: 20110824, end: 20110829
  13. KLOR-CON [Concomitant]
     Indication: MINERAL SUPPLEMENTATION
  14. COQ10 [Concomitant]
     Indication: PRODUCT USED FOR UNKNOWN INDICATION
  15. OMEGA 3                            /00931501/ [Concomitant]
     Indication: PRODUCT USED FOR UNKNOWN INDICATION
  16. IRON [Concomitant]
     Indication: ANAEMIA
  17. ZYRTEC [Concomitant]
     Indication: RHINITIS ALLERGIC
     Dosage: UNK, PRN
  18. ASPIRIN [Concomitant]
     Indication: PRODUCT USED FOR UNKNOWN INDICATION
     Dosage: 325 MG, QD
  19. VICTOZA [Suspect]
     Dosage: 1.2 MG, QD
     Route: 058
     Dates: start: 20111001
  20. SINGULAIR [Concomitant]
     Indication: RHINITIS ALLERGIC
  21. CARVEDILOL [Concomitant]
     Indication: HYPERTENSION
     Dosage: UNK, BID
  22. TORADOL [Concomitant]
     Indication: MIGRAINE
     Dosage: UNK, PRN
  23. ADVAIR DISKUS 100/50 [Concomitant]
     Indication: ASTHMA
  24. CALCIUM [Concomitant]
     Indication: PRODUCT USED FOR UNKNOWN INDICATION
  25. DIOVAN HCT [Concomitant]
     Indication: HYPERTENSION
  26. FLOVENT [Concomitant]
     Indication: ASTHMA
  27. CINNAMON [Concomitant]
     Indication: PRODUCT USED FOR UNKNOWN INDICATION

REACTIONS (6)
  - CHOLECYSTECTOMY [None]
  - CHOLECYSTITIS [None]
  - NIGHT SWEATS [None]
  - ABDOMINAL DISTENSION [None]
  - OEDEMA PERIPHERAL [None]
  - CHOLELITHIASIS [None]
